FAERS Safety Report 6684031-7 (Version None)
Quarter: 2010Q2

REPORT INFORMATION
  Report Type: 
  Country: None (occurrence: None)
  Receive Date: 20100416
  Receipt Date: 20100412
  Transmission Date: 20101027
  Serious: Yes (Other)
  Sender: FDA-Public Use
  Company Number: US-ASTRAZENECA-2007UW01932

PATIENT
  Age: 35 Year
  Sex: Male
  Weight: 90.7 kg

DRUGS (16)
  1. SEROQUEL [Suspect]
     Route: 048
     Dates: start: 20020320
  2. SEROQUEL [Suspect]
     Dosage: 100 MG TABLET DISPENSED
     Route: 048
     Dates: start: 20021111
  3. SEROQUEL [Suspect]
     Route: 048
     Dates: start: 20040716
  4. SEROQUEL [Suspect]
     Dosage: 100 MG ONE TABLET IN THE MORNING, ONE TABLET AT NOON AND 200 MG ONE TABLET AT NIGHT
     Route: 048
     Dates: start: 20050121
  5. SEROQUEL [Suspect]
     Dosage: 800 MG-900 MG
     Route: 048
     Dates: start: 20060107
  6. GLUCOPHAGE [Concomitant]
     Route: 048
     Dates: start: 20030101, end: 20050121
  7. ACTOS [Concomitant]
     Route: 048
     Dates: start: 20030101, end: 20050121
  8. TRAZODONE [Concomitant]
     Route: 048
     Dates: start: 20020306
  9. LORAZEPAM [Concomitant]
     Dosage: 0.5 MG TO 1.5 MG
     Dates: start: 20031204
  10. PAXIL [Concomitant]
     Route: 048
     Dates: start: 20010419
  11. HUMULIN 70/30 [Concomitant]
     Dosage: 21 UNITS AT MORNING AND 34 UNITS AT NIGHT
     Dates: start: 20050417
  12. ALBUTEROL [Concomitant]
     Dosage: TWO PUFFS THREE TIMES A DAY
     Dates: start: 20001214
  13. EFFEXOR XR [Concomitant]
     Route: 048
     Dates: start: 20040515
  14. GEODON [Concomitant]
     Route: 048
     Dates: start: 20040513
  15. PREDNISONE [Concomitant]
     Indication: ASTHMA
     Dosage: 20 MG-50 MG
     Route: 048
     Dates: start: 20021213
  16. PREDNISONE [Concomitant]
     Indication: ERYTHEMA MULTIFORME
     Dosage: 20 MG-50 MG
     Route: 048
     Dates: start: 20021213

REACTIONS (8)
  - BLOOD CHOLESTEROL INCREASED [None]
  - DIABETES MELLITUS [None]
  - DIABETES MELLITUS INADEQUATE CONTROL [None]
  - DIABETIC NEUROPATHY [None]
  - HYPERTRIGLYCERIDAEMIA [None]
  - OBESITY [None]
  - PANCREATITIS [None]
  - TYPE 2 DIABETES MELLITUS [None]
